FAERS Safety Report 16892208 (Version 2)
Quarter: 2019Q4

REPORT INFORMATION
  Report Type: Spontaneous
  Country: GB (occurrence: GB)
  Receive Date: 20191007
  Receipt Date: 20191011
  Transmission Date: 20200122
  Serious: Yes (Hospitalization, Other)
  Sender: FDA-Public Use
  Company Number: GB-MYLANLABS-2019M1092319

PATIENT
  Age: 24 Year
  Sex: Female

DRUGS (7)
  1. LAMOTRIGINE. [Suspect]
     Active Substance: LAMOTRIGINE
     Dosage: 375 MILLIGRAM,(175MG IN THE MORNING AND 200MG IN THE EVENING)
     Route: 065
  2. TEGRETOL [Suspect]
     Active Substance: CARBAMAZEPINE
     Indication: EPILEPSY
     Dosage: 200 MG, BID
     Route: 065
  3. TEGRETOL [Suspect]
     Active Substance: CARBAMAZEPINE
     Dosage: 600 MG, BID (MADE UP USING 400MG AND 200MG PROLONGED RELEASE TABLETS)
     Route: 065
  4. TEGRETOL [Suspect]
     Active Substance: CARBAMAZEPINE
     Dosage: 100 MG, BID
     Route: 065
  5. TEGRETOL [Suspect]
     Active Substance: CARBAMAZEPINE
     Dosage: 200 MG, BID (TABLET)
     Route: 065
  6. VITAMIN B [Concomitant]
     Active Substance: VITAMIN B
     Indication: PRODUCT USED FOR UNKNOWN INDICATION
     Dosage: UNK
     Route: 065
  7. LAMOTRIGINE. [Suspect]
     Active Substance: LAMOTRIGINE
     Indication: EPILEPSY
     Dosage: UNK MILLIGRAM
     Route: 065

REACTIONS (15)
  - Stress [Unknown]
  - Impaired work ability [Unknown]
  - Depression [Unknown]
  - Menstrual disorder [Unknown]
  - Seizure [Unknown]
  - Headache [Unknown]
  - Pain in extremity [Unknown]
  - Anxiety [Unknown]
  - Drug ineffective [Unknown]
  - Quality of life decreased [Unknown]
  - Hemiparesis [Unknown]
  - Respiratory arrest [Recovered/Resolved]
  - Gait disturbance [Unknown]
  - Screaming [Unknown]
  - Muscle injury [Unknown]
